FAERS Safety Report 11991525 (Version 1)
Quarter: 2016Q1

REPORT INFORMATION
  Report Type: Spontaneous
  Country: US (occurrence: US)
  Receive Date: 20160203
  Receipt Date: 20160203
  Transmission Date: 20160526
  Serious: No
  Sender: FDA-Public Use
  Company Number: US-JNJFOC-20151225362

PATIENT
  Sex: Male
  Weight: 52.16 kg

DRUGS (1)
  1. HALDOL [Suspect]
     Active Substance: HALOPERIDOL
     Indication: RESTLESSNESS
     Route: 065

REACTIONS (5)
  - Feeling abnormal [Unknown]
  - Confusional state [Unknown]
  - Logorrhoea [Unknown]
  - Weight decreased [Unknown]
  - Eating disorder [Unknown]
